FAERS Safety Report 21538435 (Version 2)
Quarter: 2022Q4

REPORT INFORMATION
  Report Type: Spontaneous
  Country: DE (occurrence: DE)
  Receive Date: 20221102
  Receipt Date: 20221110
  Transmission Date: 20230112
  Serious: Yes (Other)
  Sender: FDA-Public Use
  Company Number: DE-BAUSCHBL-2022BNL001054

PATIENT
  Age: 24 Year
  Sex: Female
  Weight: 50 kg

DRUGS (3)
  1. IBUPROFEN [Suspect]
     Active Substance: IBUPROFEN
     Indication: Suicide attempt
     Dosage: 6 TABLETS, ORAL, PROBABLE EXPOSURE, 600 MG
     Route: 048
  2. IBUPROFEN [Suspect]
     Active Substance: IBUPROFEN
     Indication: Intentional self-injury
  3. DIPHENHYDRAMINE HYDROCHLORIDE [Suspect]
     Active Substance: DIPHENHYDRAMINE HYDROCHLORIDE
     Indication: Suicidal ideation
     Dosage: 12 TABLETS, ORAL, PROBABLE EXPOSURE, 25 MG
     Route: 048

REACTIONS (8)
  - Hallucination, visual [Not Recovered/Not Resolved]
  - Suicide attempt [Unknown]
  - Intentional self-injury [Unknown]
  - Tremor [Not Recovered/Not Resolved]
  - Tachypnoea [Not Recovered/Not Resolved]
  - Intentional overdose [Unknown]
  - Vomiting [Not Recovered/Not Resolved]
  - Tachycardia [Not Recovered/Not Resolved]
